FAERS Safety Report 6129514-3 (Version None)
Quarter: 2009Q1

REPORT INFORMATION
  Report Type: 
  Country: None (occurrence: None)
  Receive Date: 20090324
  Receipt Date: 20090310
  Transmission Date: 20090719
  Serious: Yes (Hospitalization)
  Sender: FDA-Public Use
  Company Number: GB-TYCO HEALTHCARE/MALLINCKRODT-T200900662

PATIENT

DRUGS (21)
  1. OXYCODONE HCL EXTENDED-RELEASE [Suspect]
     Indication: PAIN
     Dosage: 40 MG, BID
     Dates: start: 20081114
  2. BEVACIZUMAB [Suspect]
     Indication: NON-SMALL CELL LUNG CANCER
     Dosage: 1200 MG, EVERY 3 WEEKS CYCLIC
     Route: 042
     Dates: start: 20081106
  3. CARBOPLATIN [Suspect]
     Indication: NON-SMALL CELL LUNG CANCER
     Dosage: 680 MG, EVERY 3 WEEKS CYCLIC
     Route: 042
     Dates: start: 20081106, end: 20090204
  4. PACLITAXEL [Suspect]
     Indication: NON-SMALL CELL LUNG CANCER
     Dosage: 318 MG, EVER 3 WEEKS, CYCLIC
     Route: 042
     Dates: start: 20081106, end: 20090204
  5. PREDNISONE [Concomitant]
     Indication: STRIDOR
     Dosage: 20 MG, QD
     Dates: start: 20081024, end: 20090107
  6. PREDNISONE [Concomitant]
     Indication: DYSPHONIA
     Dosage: 15 MG, QD
     Dates: start: 20090108
  7. SALBUTAMOL SULFATE [Concomitant]
     Indication: DYSPNOEA
     Dosage: UNK
     Dates: start: 20081103
  8. SODIUM CHLORIDE [Concomitant]
     Indication: DYSPNOEA
     Dosage: UNK
     Dates: start: 20081103
  9. MOVICOL                            /01053601/ [Concomitant]
     Indication: CONSTIPATION
     Dosage: 2 SACHETS DAILY
     Dates: start: 20081024
  10. OXYNORM [Concomitant]
     Indication: PAIN
     Dosage: 5-10 ML, PRN
     Dates: start: 20081103
  11. OXYNORM [Concomitant]
     Dosage: 75 ML, BID
     Dates: start: 20081114
  12. DICLOFENAC [Concomitant]
     Indication: PAIN
     Dosage: 75 MG, BID
     Dates: start: 20081119
  13. OMEPRAZOLE [Concomitant]
     Indication: PROPHYLAXIS
     Dosage: 20 MG, QD
     Dates: start: 20081119
  14. MICROLAX                           /00285401/ [Concomitant]
     Indication: CONSTIPATION
     Dosage: ONE ENEMA AS NEEDED
     Dates: start: 20081020
  15. ZOPICLONE [Concomitant]
     Indication: INSOMNIA
     Dosage: 15 MG, PRN
     Dates: start: 20081120
  16. VITAMIN B COMPLEX                  /00003501/ [Concomitant]
     Dosage: ONE TABLET, BID
     Dates: start: 20081202
  17. BENDROFLUAZIDE [Concomitant]
     Indication: BLOOD PRESSURE
     Dosage: 2.5 MG, UNK
     Dates: start: 20090102
  18. ATROVENT [Concomitant]
     Indication: CHEST DISCOMFORT
     Dosage: 2 PUFFS, QD
     Dates: start: 20081223
  19. AMITRIPTYLINE HYDROCHLORIDE [Concomitant]
     Indication: NEUROPATHY PERIPHERAL
     Dosage: 25 MG, QD
     Dates: start: 20081223
  20. AMITRIPTYLINE HYDROCHLORIDE [Concomitant]
     Indication: PAIN
  21. ANUSOL                             /00117301/ [Concomitant]
     Indication: PROCTALGIA
     Dosage: UNK
     Dates: start: 20090114

REACTIONS (1)
  - ANAL FISSURE [None]
